FAERS Safety Report 14704812 (Version 2)
Quarter: 2018Q2

REPORT INFORMATION
  Report Type: Report from Study
  Country: US (occurrence: US)
  Receive Date: 20180402
  Receipt Date: 20180405
  Transmission Date: 20180711
  Serious: Yes (Hospitalization)
  Sender: FDA-Public Use
  Company Number: US-UCBSA-2017013242

PATIENT
  Age: 40 Year
  Sex: Male

DRUGS (6)
  1. KEPPRA XR [Suspect]
     Active Substance: LEVETIRACETAM
     Dosage: 4 DF, 2X/DAY (BID) (4T QAM 4T QPM)
  2. LEVETIRACETAM. [Suspect]
     Active Substance: LEVETIRACETAM
     Indication: EPILEPSY
     Dosage: 500 MG
  3. KEPPRA XR [Suspect]
     Active Substance: LEVETIRACETAM
     Indication: EPILEPSY
     Dosage: 500 MG TABLETS FROM 5 TABLETS PER DAY
     Dates: start: 2017, end: 2017
  4. ALKA-SELTZER [Concomitant]
     Active Substance: ANHYDROUS CITRIC ACID\ASPIRIN\SODIUM BICARBONATE
     Indication: NASOPHARYNGITIS
  5. LEVETIRACETAM. [Suspect]
     Active Substance: LEVETIRACETAM
     Dosage: 2 X 500 MG TABLET IN MORNING AND 3 X 500 MG TABLETS IN THE EVENING
     Dates: start: 201704, end: 2017
  6. KEPPRA XR [Suspect]
     Active Substance: LEVETIRACETAM
     Indication: PARTIAL SEIZURES
     Dosage: 500 MG TABLETS FROM 5 TABLETS PER DAY

REACTIONS (6)
  - Seizure [Unknown]
  - Dizziness [Unknown]
  - Overdose [Unknown]
  - Off label use [Unknown]
  - Somnolence [Unknown]
  - Nasopharyngitis [Not Recovered/Not Resolved]

NARRATIVE: CASE EVENT DATE: 2017
